FAERS Safety Report 15863286 (Version 8)
Quarter: 2019Q3

REPORT INFORMATION
  Report Type: Report from Study
  Country: AR (occurrence: AR)
  Receive Date: 20190124
  Receipt Date: 20190910
  Transmission Date: 20191004
  Serious: Yes (Hospitalization, Other)
  Sender: FDA-Public Use
  Company Number: AR-ACTELION-A-CH2019-185065

PATIENT
  Age: 34 Year
  Sex: Female
  Weight: 49 kg

DRUGS (6)
  1. VELETRI [Suspect]
     Active Substance: EPOPROSTENOL
     Dosage: 1 NG/KG, PER MIN
     Route: 042
     Dates: start: 20171004
  2. ACALIX [Concomitant]
  3. KETOROLAC [Concomitant]
     Active Substance: KETOROLAC TROMETHAMINE
  4. BILBERRY [Concomitant]
     Active Substance: BILBERRY
  5. VELETRI [Suspect]
     Active Substance: EPOPROSTENOL
     Indication: PULMONARY ARTERIAL HYPERTENSION
     Dosage: 1 NG/KG, PER MIN
     Route: 042
     Dates: start: 20170410
  6. BOSENTAN. [Concomitant]
     Active Substance: BOSENTAN

REACTIONS (16)
  - Urinary tract infection [Not Recovered/Not Resolved]
  - Pain in extremity [Recovering/Resolving]
  - Infection [Not Recovered/Not Resolved]
  - Renal disorder [Not Recovered/Not Resolved]
  - Cardiac disorder [Not Recovered/Not Resolved]
  - Abdominal pain upper [Recovering/Resolving]
  - Pyrexia [Recovering/Resolving]
  - Discomfort [Recovering/Resolving]
  - Renal pain [Not Recovered/Not Resolved]
  - Catheter placement [Unknown]
  - Malaise [Unknown]
  - Headache [Recovering/Resolving]
  - Vomiting [Recovering/Resolving]
  - Apathy [Unknown]
  - Nephrolithiasis [Not Recovered/Not Resolved]
  - Sepsis [Not Recovered/Not Resolved]

NARRATIVE: CASE EVENT DATE: 20190116
